FAERS Safety Report 22244108 (Version 3)
Quarter: 2023Q4

REPORT INFORMATION
  Report Type: Report from Study
  Country: US (occurrence: US)
  Receive Date: 20230424
  Receipt Date: 20231010
  Transmission Date: 20240110
  Serious: Yes (Other)
  Sender: FDA-Public Use
  Company Number: US-ABBVIE-4735880

PATIENT
  Age: 23 Year
  Sex: Male

DRUGS (2)
  1. HUMIRA [Suspect]
     Active Substance: ADALIMUMAB
     Indication: Rheumatoid arthritis
     Dosage: STRENGTH: 40 MILLIGRAM, CITRATE FREE
     Route: 058
     Dates: start: 20210430
  2. CREATINE [Concomitant]
     Active Substance: CREATINE
     Indication: Muscle mass

REACTIONS (6)
  - Tendon injury [Recovering/Resolving]
  - Urticaria [Not Recovered/Not Resolved]
  - Muscular weakness [Unknown]
  - Procedural pain [Unknown]
  - Blood creatine increased [Unknown]
  - Pruritus [Unknown]

NARRATIVE: CASE EVENT DATE: 20230401
